FAERS Safety Report 25964906 (Version 1)
Quarter: 2025Q4

REPORT INFORMATION
  Report Type: Spontaneous
  Country: US (occurrence: US)
  Receive Date: 20251027
  Receipt Date: 20251027
  Transmission Date: 20260118
  Serious: No
  Sender: BIOGEN
  Company Number: US-BIOGEN-2087528

PATIENT
  Age: 52 Year

DRUGS (1)
  1. PLEGRIDY [Suspect]
     Active Substance: PEGINTERFERON BETA-1A
     Indication: Multiple sclerosis

REACTIONS (1)
  - Drug delivery system malfunction [Unknown]

NARRATIVE: CASE EVENT DATE: 20251014
